FAERS Safety Report 4502013-8 (Version None)
Quarter: 2004Q4

REPORT INFORMATION
  Report Type: 
  Country: None (occurrence: None)
  Receive Date: 20041115
  Receipt Date: 20041115
  Transmission Date: 20050328
  Serious: Yes (Hospitalization)
  Sender: FDA-Public Use
  Company Number: None

PATIENT
  Age: 64 Year
  Sex: Male
  Weight: 88.5 kg

DRUGS (18)
  1. SPIRONOLACTONE [Suspect]
  2. FOSINOPRIL SODIUM [Suspect]
  3. COLCHICINE [Concomitant]
  4. FOLIC ACID [Concomitant]
  5. LACTULOSE [Concomitant]
  6. SIMVASTATIN [Concomitant]
  7. DIGOXIN [Concomitant]
  8. SENNA TAB [Concomitant]
  9. AMIODARONE [Concomitant]
  10. MORPHINE SULFATE [Concomitant]
  11. OMEPRAZOLE [Concomitant]
  12. REGULAR INSULIN [Concomitant]
  13. DEXTROSE [Concomitant]
  14. ALBUTEROL [Concomitant]
  15. LEVOTHYROXINE SODIUM [Concomitant]
  16. LACTULOSE [Concomitant]
  17. FOLIC ACID [Concomitant]
  18. CEFTRIAXONE SODIUM [Concomitant]

REACTIONS (5)
  - ASTHENIA [None]
  - DIZZINESS [None]
  - DYSPNOEA [None]
  - GAIT DISTURBANCE [None]
  - OEDEMA PERIPHERAL [None]
